FAERS Safety Report 4588072-5 (Version None)
Quarter: 2005Q1

REPORT INFORMATION
  Report Type: 
  Country: None (occurrence: None)
  Receive Date: 20050216
  Receipt Date: 20050128
  Transmission Date: 20050727
  Serious: Yes (Hospitalization)
  Sender: FDA-Public Use
  Company Number: GBS041216274

PATIENT
  Sex: Female

DRUGS (3)
  1. YENTREVE                 (DULOXETINE HYDROCHLORIDE) [Suspect]
     Indication: STRESS INCONTINENCE
     Dosage: 40 MG/2 DAY
  2. SERTRALINE HCL [Concomitant]
  3. ANTIDEPRESSANT [Concomitant]

REACTIONS (1)
  - DEPRESSION [None]
